FAERS Safety Report 5005842-X (Version None)
Quarter: 2006Q2

REPORT INFORMATION
  Report Type: 
  Country: None (occurrence: None)
  Receive Date: 20060515
  Receipt Date: 20060502
  Transmission Date: 20061013
  Serious: Yes (Death)
  Sender: FDA-Public Use
  Company Number: 2006S1003937

PATIENT
  Age: 30 Year
  Sex: Female

DRUGS (4)
  1. CLOZAPINE [Suspect]
     Indication: AUTISM
     Dosage: 150 MG; HS; ORAL
     Route: 048
     Dates: start: 20030707, end: 20060401
  2. CLOZAPINE [Suspect]
     Indication: PSYCHOTIC DISORDER
     Dosage: 150 MG; HS; ORAL
     Route: 048
     Dates: start: 20030707, end: 20060401
  3. RISPERIDONE [Concomitant]
  4. FLUOXETINE [Concomitant]

REACTIONS (3)
  - EXCESSIVE EXERCISE [None]
  - FALL [None]
  - RESPIRATORY FAILURE [None]
